FAERS Safety Report 10075410 (Version 1)
Quarter: 2014Q1

REPORT INFORMATION
  Report Type: Spontaneous
  Country: US (occurrence: None)
  Receive Date: 20140318
  Receipt Date: 20140318
  Transmission Date: 20141002
  Serious: Yes (Other)
  Sender: FDA-Public Use
  Company Number: 2014-00009

PATIENT
  Age: 65 Year
  Sex: Male

DRUGS (3)
  1. ZICAM COLD REMEDY NASAL GEL [Suspect]
     Indication: NASOPHARYNGITIS
     Dosage: 1 SPRAY EACH NOSTRIL
     Dates: start: 20140105, end: 20140110
  2. ZICAM COLD REMEDY NASAL GEL [Suspect]
     Indication: INFLUENZA
     Dosage: 1 SPRAY EACH NOSTRIL
     Dates: start: 20140105, end: 20140110
  3. UNSPECIFIED ANTI-HYPERTENSIVE MEDICATION [Concomitant]

REACTIONS (2)
  - Expired drug administered [None]
  - Parosmia [None]
